FAERS Safety Report 9819493 (Version 1)
Quarter: 2014Q1

REPORT INFORMATION
  Report Type: Spontaneous
  Country: PH (occurrence: PH)
  Receive Date: 20140115
  Receipt Date: 20140115
  Transmission Date: 20141002
  Serious: Yes (Death)
  Sender: FDA-Public Use
  Company Number: PH-009507513-1401PHL004680

PATIENT
  Age: 67 Year
  Sex: Male

DRUGS (1)
  1. JANUVIA [Suspect]
     Dosage: ONE TABLET ONCE A DAY
     Route: 048
     Dates: start: 20121027

REACTIONS (2)
  - Renal disorder [Fatal]
  - Pneumonia [Fatal]
